FAERS Safety Report 24337865 (Version 1)
Quarter: 2024Q3

REPORT INFORMATION
  Report Type: Spontaneous
  Country: US (occurrence: US)
  Receive Date: 20240919
  Receipt Date: 20240919
  Transmission Date: 20241017
  Serious: Yes (Hospitalization)
  Sender: AMGEN
  Company Number: US-AMGEN-USASP2024183244

PATIENT
  Age: 77 Year
  Sex: Female

DRUGS (3)
  1. EVENITY [Suspect]
     Active Substance: ROMOSOZUMAB-AQQG
     Indication: Product used for unknown indication
     Dosage: UNK
     Route: 065
     Dates: start: 20240715
  2. EVENITY [Suspect]
     Active Substance: ROMOSOZUMAB-AQQG
  3. PROLIA [Suspect]
     Active Substance: DENOSUMAB
     Indication: Product used for unknown indication
     Dosage: UNK
     Route: 065

REACTIONS (14)
  - Rash erythematous [Unknown]
  - Skin burning sensation [Not Recovered/Not Resolved]
  - Dry mouth [Unknown]
  - Lymphadenopathy [Unknown]
  - Taste disorder [Unknown]
  - Tooth disorder [Unknown]
  - Skin exfoliation [Unknown]
  - Arthropathy [Unknown]
  - Musculoskeletal discomfort [Unknown]
  - Mouth swelling [Unknown]
  - Oral disorder [Unknown]
  - Pain in jaw [Unknown]
  - Gingival ulceration [Unknown]
  - Jaw disorder [Unknown]

NARRATIVE: CASE EVENT DATE: 20240717
